FAERS Safety Report 10017541 (Version 1)
Quarter: 2014Q1

REPORT INFORMATION
  Report Type: Spontaneous
  Country: US (occurrence: None)
  Receive Date: 20140313
  Receipt Date: 20140313
  Transmission Date: 20141002
  Serious: Yes (Other)
  Sender: FDA-Public Use
  Company Number: None

PATIENT
  Age: 82 Year
  Sex: Female
  Weight: 44.91 kg

DRUGS (3)
  1. METHYLPREDNISOLONE [Suspect]
     Indication: TOOTH INFECTION
     Route: 048
     Dates: start: 20131128, end: 20131130
  2. VITAMIN D3 [Concomitant]
  3. ASPIRIN 81 [Concomitant]

REACTIONS (2)
  - Urticaria [None]
  - Pruritus [None]
